FAERS Safety Report 17068093 (Version 1)
Quarter: 2019Q4

REPORT INFORMATION
  Report Type: Spontaneous
  Country: US (occurrence: US)
  Receive Date: 20191024
  Receipt Date: 20191024
  Transmission Date: 20200122
  Serious: Yes (Hospitalization)
  Sender: FDA-Public Use
  Company Number: None

PATIENT
  Age: 61 Year
  Sex: Female

DRUGS (1)
  1. PROLIA [Suspect]
     Active Substance: DENOSUMAB
     Indication: OSTEOPOROSIS
     Dosage: ?          OTHER FREQUENCY:EVERY 6 MONTHS;?
     Route: 058
     Dates: start: 20190417

REACTIONS (8)
  - Fungal infection [None]
  - Fatigue [None]
  - Appendicitis [None]
  - Diarrhoea [None]
  - Urinary tract infection [None]
  - Constipation [None]
  - Vomiting [None]
  - White blood cell count [None]

NARRATIVE: CASE EVENT DATE: 20190706
